FAERS Safety Report 7514940-8 (Version None)
Quarter: 2011Q2

REPORT INFORMATION
  Report Type: 
  Country: None (occurrence: None)
  Receive Date: 20110425
  Receipt Date: 20100115
  Transmission Date: 20111010
  Serious: Yes (Hospitalization, Other)
  Sender: FDA-Public Use
  Company Number: MC201000022

PATIENT
  Age: 53 Year
  Sex: Male
  Weight: 87 kg

DRUGS (1)
  1. ANGIOMAX [Suspect]

REACTIONS (1)
  - ACUTE MYOCARDIAL INFARCTION [None]
